FAERS Safety Report 25250537 (Version 1)
Quarter: 2025Q2

REPORT INFORMATION
  Report Type: Spontaneous
  Country: US (occurrence: None)
  Receive Date: 20250428
  Receipt Date: 20250428
  Transmission Date: 20250717
  Serious: Yes (unspecified)
  Sender: FDA-CTU
  Company Number: None

PATIENT
  Age: 23 Year
  Sex: Female
  Weight: 51.2 kg

DRUGS (4)
  1. PARAGARD T 380A [Suspect]
     Active Substance: COPPER
  2. ALBUTEROL [Concomitant]
     Active Substance: ALBUTEROL
  3. IBUPROFEN [Concomitant]
     Active Substance: IBUPROFEN
  4. AZO cranberry vitamins [Concomitant]

REACTIONS (7)
  - Device dislocation [None]
  - Pain [None]
  - Feeling abnormal [None]
  - Back disorder [None]
  - Muscle spasms [None]
  - Gait disturbance [None]
  - Discomfort [None]

NARRATIVE: CASE EVENT DATE: 20250326
